FAERS Safety Report 6092306-8 (Version None)
Quarter: 2009Q1

REPORT INFORMATION
  Report Type: 
  Country: None (occurrence: None)
  Receive Date: 20090225
  Receipt Date: 20090223
  Transmission Date: 20090719
  Serious: Yes (Hospitalization)
  Sender: FDA-Public Use
  Company Number: B0560187A

PATIENT
  Age: 57 Year
  Sex: Female
  Weight: 70 kg

DRUGS (6)
  1. LAPATINIB [Suspect]
     Indication: BREAST CANCER
     Dosage: 1000MG PER DAY
     Route: 048
     Dates: start: 20090217
  2. TRASTUZUMAB [Suspect]
     Indication: BREAST CANCER
     Dosage: 8MGK PER DAY
     Route: 042
     Dates: start: 20090210
  3. DETRALEX [Concomitant]
     Dosage: 500MG PER DAY
     Route: 048
     Dates: start: 20080801
  4. CLEMASTIN [Concomitant]
     Dosage: 2MG PER DAY
  5. DEXAMETHASONE [Concomitant]
     Dosage: 40MG PER DAY
     Route: 042
  6. PARACETAMOL [Concomitant]
     Dosage: 1500MG PER DAY
     Route: 048

REACTIONS (3)
  - CHILLS [None]
  - HYPERSENSITIVITY [None]
  - PYREXIA [None]
